FAERS Safety Report 7844458-4 (Version None)
Quarter: 2011Q4

REPORT INFORMATION
  Report Type: 
  Country: None (occurrence: None)
  Receive Date: 20111025
  Receipt Date: 20111014
  Transmission Date: 20120403
  Serious: Yes (Hospitalization, Disabling, Other)
  Sender: FDA-Public Use
  Company Number: US-MERCK-1108USA00179

PATIENT
  Age: 60 Year
  Sex: Female
  Weight: 60 kg

DRUGS (5)
  1. FEMARA [Suspect]
     Indication: BREAST CANCER
     Route: 065
     Dates: end: 20070501
  2. EFFEXOR [Concomitant]
     Route: 065
     Dates: start: 20030101
  3. FOSAMAX [Suspect]
     Indication: OSTEOPOROSIS
     Route: 048
     Dates: start: 20031001, end: 20090801
  4. FOSAMAX [Suspect]
     Indication: OSTEOPOROSIS PROPHYLAXIS
     Route: 048
     Dates: start: 20031001, end: 20090801
  5. TAMOXIFEN CITRATE [Concomitant]
     Route: 065
     Dates: start: 20031001, end: 20080101

REACTIONS (24)
  - POST PROCEDURAL HAEMATOMA [None]
  - HAND FRACTURE [None]
  - BONE DENSITY DECREASED [None]
  - BONE DISORDER [None]
  - STAPHYLOCOCCAL INFECTION [None]
  - RHINITIS ALLERGIC [None]
  - OSTEOPOROSIS POSTMENOPAUSAL [None]
  - LUMBAR RADICULOPATHY [None]
  - OSTEOARTHRITIS [None]
  - FALL [None]
  - FOOT FRACTURE [None]
  - MIGRAINE [None]
  - SALMONELLOSIS [None]
  - MYALGIA [None]
  - FEMUR FRACTURE [None]
  - HAEMOGLOBIN DECREASED [None]
  - POOR QUALITY SLEEP [None]
  - FRACTURE NONUNION [None]
  - LOW TURNOVER OSTEOPATHY [None]
  - HAEMATOCRIT DECREASED [None]
  - DRUG ADMINISTRATION ERROR [None]
  - APPENDIX DISORDER [None]
  - POSTOPERATIVE WOUND INFECTION [None]
  - SKIN DISORDER [None]
